FAERS Safety Report 9466497 (Version 1)
Quarter: 2013Q3

REPORT INFORMATION
  Report Type: Report from Study
  Country: GB (occurrence: GB)
  Receive Date: 20130820
  Receipt Date: 20130820
  Transmission Date: 20140515
  Serious: Yes (Hospitalization)
  Sender: FDA-Public Use
  Company Number: GB-SANOFI-AVENTIS-2013SA081653

PATIENT
  Age: 68 Year
  Sex: Male

DRUGS (4)
  1. DOCETAXEL [Suspect]
     Indication: PROSTATE CANCER
     Dosage: DOSE: 150
     Route: 042
     Dates: start: 20130307, end: 20130307
  2. DOCETAXEL [Suspect]
     Indication: PROSTATE CANCER
     Dosage: DOSE : 150
     Route: 042
     Dates: start: 20130620, end: 20130620
  3. ZOLADEX [Suspect]
     Indication: PROSTATE CANCER
     Route: 058
     Dates: start: 20130206
  4. ZOLADEX [Suspect]
     Indication: PROSTATE CANCER
     Route: 058
     Dates: start: 20130529

REACTIONS (2)
  - Nail disorder [Recovered/Resolved with Sequelae]
  - Purulent discharge [Recovered/Resolved with Sequelae]
